FAERS Safety Report 6780386-3 (Version None)
Quarter: 2010Q2

REPORT INFORMATION
  Report Type: 
  Country: None (occurrence: None)
  Receive Date: 20100618
  Receipt Date: 20100609
  Transmission Date: 20101027
  Serious: Yes (Hospitalization, Other)
  Sender: FDA-Public Use
  Company Number: DE-ABBOTT-10P-062-0631600-00

PATIENT
  Sex: Male
  Weight: 75 kg

DRUGS (8)
  1. HUMIRA [Suspect]
     Indication: CROHN'S DISEASE
     Route: 058
     Dates: start: 20090922, end: 20090922
  2. HUMIRA [Suspect]
     Route: 058
     Dates: start: 20090928
  3. PREDNISOLONE [Concomitant]
     Indication: CROHN'S DISEASE
     Route: 048
     Dates: start: 20080101, end: 20090101
  4. PREDNISOLONE [Concomitant]
     Dates: start: 20100301
  5. AZATHIOPRINE [Concomitant]
     Indication: CROHN'S DISEASE
     Route: 048
     Dates: start: 20090701, end: 20100101
  6. AZATHIOPRINE [Concomitant]
     Route: 048
     Dates: start: 20100101, end: 20100301
  7. AZATHIOPRINE [Concomitant]
     Route: 048
     Dates: start: 20100301
  8. FOLSAN [Concomitant]
     Indication: DRUG USE FOR UNKNOWN INDICATION

REACTIONS (7)
  - ARTHRALGIA [None]
  - BONE PAIN [None]
  - DEMYELINATION [None]
  - HYPERTRIGLYCERIDAEMIA [None]
  - METABOLIC DISORDER [None]
  - SPONDYLITIS [None]
  - TENDON PAIN [None]
